FAERS Safety Report 7473022-4 (Version None)
Quarter: 2011Q2

REPORT INFORMATION
  Report Type: 
  Country: None (occurrence: None)
  Receive Date: 20110511
  Receipt Date: 20110504
  Transmission Date: 20111010
  Serious: Yes (Hospitalization, Other)
  Sender: FDA-Public Use
  Company Number: US-ROCHE-527504

PATIENT
  Sex: Female
  Weight: 73.5 kg

DRUGS (1)
  1. ACCUTANE [Suspect]
     Dosage: PATIENT FILLED ACCUTANE 40 MG CAPS ON 02NOV94, 27DEC94, 07FEB95 AND 17APR95.
     Route: 065
     Dates: start: 19941102, end: 19950617

REACTIONS (23)
  - INTESTINAL OBSTRUCTION [None]
  - TONSILLECTOMY [None]
  - CHOLELITHIASIS [None]
  - ULCERATIVE KERATITIS [None]
  - PEPTIC ULCER [None]
  - DEPRESSION [None]
  - RHEUMATOID ARTHRITIS [None]
  - FIBROMYALGIA [None]
  - INTERVERTEBRAL DISC DEGENERATION [None]
  - LIP DRY [None]
  - BRONCHITIS [None]
  - PHARYNGITIS STREPTOCOCCAL [None]
  - WEIGHT DECREASED [None]
  - ANXIETY [None]
  - INFLAMMATORY BOWEL DISEASE [None]
  - COLITIS ULCERATIVE [None]
  - ADENOIDAL HYPERTROPHY [None]
  - ANAL FISSURE [None]
  - BLINDNESS [None]
  - CHRONIC SINUSITIS [None]
  - MUSCULOSKELETAL DISORDER [None]
  - PLEURISY [None]
  - CROHN'S DISEASE [None]
